FAERS Safety Report 19544754 (Version 2)
Quarter: 2021Q3

REPORT INFORMATION
  Report Type: Spontaneous
  Country: US (occurrence: US)
  Receive Date: 20210713
  Receipt Date: 20210802
  Transmission Date: 20211014
  Serious: Yes (Death)
  Sender: FDA-Public Use
  Company Number: US-PFIZER INC-2021401953

PATIENT
  Age: 93 Year
  Sex: Male

DRUGS (1)
  1. RETACRIT [Suspect]
     Active Substance: EPOETIN ALFA-EPBX
     Indication: ANAEMIA
     Dosage: 40000 IU/ML (SQ EVERY 2 WEEKS)
     Route: 058
     Dates: start: 20210610

REACTIONS (3)
  - Full blood count decreased [Unknown]
  - Off label use [Unknown]
  - Death [Fatal]
